FAERS Safety Report 5304881-9 (Version None)
Quarter: 2007Q2

REPORT INFORMATION
  Report Type: 
  Country: None (occurrence: None)
  Receive Date: 20070423
  Receipt Date: 20070411
  Transmission Date: 20071010
  Serious: Yes (Hospitalization, Other)
  Sender: FDA-Public Use
  Company Number: JP-PFIZER INC-2007030067

PATIENT
  Age: 50 Year
  Sex: Male

DRUGS (3)
  1. CABASER [Suspect]
     Indication: PARKINSON'S DISEASE
     Dosage: TEXT:2-3MG
     Route: 048
  2. PERMAX [Concomitant]
     Route: 048
  3. SYMMETREL [Concomitant]
     Route: 048

REACTIONS (2)
  - CARDIAC FAILURE [None]
  - MITRAL VALVE INCOMPETENCE [None]
